FAERS Safety Report 18833368 (Version 4)
Quarter: 2025Q1

REPORT INFORMATION
  Report Type: Report from Study
  Country: FR (occurrence: FR)
  Receive Date: 20210203
  Receipt Date: 20250315
  Transmission Date: 20250408
  Serious: Yes (Other)
  Sender: AUROBINDO
  Company Number: FR-SUN PHARMACEUTICAL INDUSTRIES LTD-2019R1-221595

PATIENT
  Age: 58 Year

DRUGS (4)
  1. AMOXICILLIN\CLAVULANIC ACID [Suspect]
     Active Substance: AMOXICILLIN\CLAVULANIC ACID
     Indication: Product used for unknown indication
     Dosage: 12 GRAM, ONCE A DAY
     Route: 042
  2. AMOXICILLIN\CLAVULANIC ACID [Suspect]
     Active Substance: AMOXICILLIN\CLAVULANIC ACID
     Dosage: 25 GRAM, ONCE A DAY
     Route: 042
  3. AMOXICILLIN [Suspect]
     Active Substance: AMOXICILLIN
     Indication: Meningitis bacterial
     Dosage: 25 GRAM, ONCE A DAY
     Route: 042
  4. AMOXICILLIN [Suspect]
     Active Substance: AMOXICILLIN
     Dosage: 12 GRAM, ONCE A DAY
     Route: 042

REACTIONS (4)
  - Acute kidney injury [Unknown]
  - Nephropathy toxic [Unknown]
  - Nephrotic syndrome [Unknown]
  - Renal tubular disorder [Unknown]
